FAERS Safety Report 24396338 (Version 1)
Quarter: 2024Q4

REPORT INFORMATION
  Report Type: Spontaneous
  Country: US (occurrence: None)
  Receive Date: 20241003
  Receipt Date: 20241003
  Transmission Date: 20250115
  Serious: Yes (Other)
  Sender: Public
  Company Number: None

PATIENT
  Age: 73 Year
  Sex: Male

DRUGS (1)
  1. POMALYST [Suspect]
     Active Substance: POMALIDOMIDE
     Indication: Plasma cell myeloma
     Dosage: OTHER FREQUENCY : DAILY FOR 21 DAYS, THEN 7 DAYS OFF;?
     Route: 048
     Dates: start: 20240716

REACTIONS (2)
  - Pruritus [None]
  - Somnolence [None]

NARRATIVE: CASE EVENT DATE: 20240912
